FAERS Safety Report 13458176 (Version 1)
Quarter: 2017Q2

REPORT INFORMATION
  Report Type: Spontaneous
  Country: FR (occurrence: FR)
  Receive Date: 20170419
  Receipt Date: 20170419
  Transmission Date: 20170830
  Serious: Yes (Other)
  Sender: FDA-Public Use
  Company Number: PHHY2017FR058330

PATIENT
  Age: 40 Year
  Sex: Male

DRUGS (1)
  1. DABRAFENIB [Suspect]
     Active Substance: DABRAFENIB
     Indication: METASTATIC MALIGNANT MELANOMA
     Dosage: 150 MG, BID
     Route: 065
     Dates: start: 201410

REACTIONS (8)
  - Rash erythematous [Recovered/Resolved]
  - Eyelid oedema [Unknown]
  - Inflammation [Recovered/Resolved]
  - Rash pustular [Recovered/Resolved]
  - Neutrophil count increased [Recovered/Resolved]
  - Skin plaque [Recovered/Resolved]
  - Hidradenitis [Recovered/Resolved]
  - Pyrexia [Recovered/Resolved]
